FAERS Safety Report 6417444-9 (Version None)
Quarter: 2009Q4

REPORT INFORMATION
  Report Type: 
  Country: None (occurrence: None)
  Receive Date: 20091027
  Receipt Date: 20091027
  Transmission Date: 20100525
  Serious: Yes (Other)
  Sender: FDA-Public Use
  Company Number: None

PATIENT
  Sex: Female
  Weight: 68.9467 kg

DRUGS (2)
  1. PREMARIN [Suspect]
     Indication: VULVOVAGINAL DRYNESS
     Dosage: 1 APPLICATION QD VAG
     Route: 067
     Dates: start: 20011001, end: 20021001
  2. PREMARIN [Suspect]
     Indication: VULVOVAGINAL DRYNESS
     Dosage: 1 APPLICATION QD VAG
     Route: 067
     Dates: start: 20040701, end: 20090510

REACTIONS (1)
  - BREAST CANCER FEMALE [None]
